FAERS Safety Report 22109771 (Version 1)
Quarter: 2023Q1

REPORT INFORMATION
  Report Type: Spontaneous
  Country: US (occurrence: US)
  Receive Date: 20230317
  Receipt Date: 20230317
  Transmission Date: 20230418
  Serious: Yes (Other)
  Sender: FDA-Public Use
  Company Number: US-FreseniusKabi-FK202303202

PATIENT
  Age: 48 Year
  Sex: Female
  Weight: 48.5 kg

DRUGS (1)
  1. NEBUPENT [Suspect]
     Active Substance: PENTAMIDINE ISETHIONATE
     Indication: Product used for unknown indication
     Dosage: UNIT DOSE - 300 MG
     Dates: start: 20230306, end: 20230306

REACTIONS (3)
  - Choking [Recovered/Resolved]
  - Dysgeusia [Recovered/Resolved]
  - Cough [Recovered/Resolved]

NARRATIVE: CASE EVENT DATE: 20230306
